FAERS Safety Report 8325182-0 (Version None)
Quarter: 2012Q2

REPORT INFORMATION
  Report Type: 
  Country: None (occurrence: None)
  Receive Date: 20120501
  Receipt Date: 20120424
  Transmission Date: 20120825
  Serious: Yes (Life-Threatening, Hospitalization)
  Sender: FDA-Public Use
  Company Number: US-CELGENEUS-163-21880-12042696

PATIENT
  Sex: Female

DRUGS (12)
  1. CITALOPRAM [Concomitant]
     Dosage: 20 MILLIGRAM
     Route: 065
  2. ALDACTONE [Concomitant]
     Dosage: 25 MILLIGRAM
     Route: 065
  3. COUMADIN [Concomitant]
     Dosage: 4 MILLIGRAM
     Route: 065
  4. METRONIDAZOLE [Concomitant]
     Dosage: 500 MILLIGRAM
     Route: 065
  5. DIGOXIN [Concomitant]
     Dosage: .125 MILLIGRAM
     Route: 065
  6. OMEPRAZOLE [Concomitant]
     Dosage: 20 MILLIGRAM
     Route: 065
  7. DECADRON [Suspect]
     Indication: MULTIPLE MYELOMA
     Dosage: 20 MILLIGRAM
     Route: 048
     Dates: start: 20110621
  8. SENNA [Concomitant]
     Route: 065
  9. ASPIRIN [Concomitant]
     Dosage: 81 MILLIGRAM
     Route: 065
  10. BLOOD TRANSFUSION [Concomitant]
     Route: 065
  11. REVLIMID [Suspect]
     Indication: MULTIPLE MYELOMA
     Dosage: 15 MILLIGRAM
     Route: 048
     Dates: start: 20100622
  12. PROCRIT [Concomitant]
     Route: 065

REACTIONS (4)
  - ASPIRATION [None]
  - HYPOXIC-ISCHAEMIC ENCEPHALOPATHY [None]
  - PNEUMOTHORAX [None]
  - CARDIO-RESPIRATORY ARREST [None]
